FAERS Safety Report 6061645-9 (Version None)
Quarter: 2009Q1

REPORT INFORMATION
  Report Type: 
  Country: None (occurrence: None)
  Receive Date: 20090202
  Receipt Date: 20090127
  Transmission Date: 20090719
  Serious: Yes (Hospitalization)
  Sender: FDA-Public Use
  Company Number: A0765950A

PATIENT
  Age: 73 Year
  Sex: Male

DRUGS (8)
  1. MELPHALAN [Suspect]
     Indication: MULTIPLE MYELOMA
     Route: 048
     Dates: start: 20080331, end: 20080627
  2. VELCADE [Suspect]
     Indication: MULTIPLE MYELOMA
     Route: 042
     Dates: start: 20080512, end: 20080724
  3. PREDNISONE [Suspect]
     Indication: MULTIPLE MYELOMA
     Route: 048
     Dates: start: 20080331, end: 20080627
  4. ANZEMET [Concomitant]
  5. KLONOPIN [Concomitant]
  6. METFORMIN [Concomitant]
     Indication: DIABETES MELLITUS
  7. PRILOSEC [Concomitant]
  8. AMARYL [Concomitant]
     Indication: DIABETES MELLITUS

REACTIONS (5)
  - ABASIA [None]
  - ASTHENIA [None]
  - FALL [None]
  - METASTASES TO ABDOMINAL CAVITY [None]
  - NEUROPATHY PERIPHERAL [None]
